FAERS Safety Report 6211081-7 (Version None)
Quarter: 2009Q2

REPORT INFORMATION
  Report Type: 
  Country: None (occurrence: None)
  Receive Date: 20090602
  Receipt Date: 20090521
  Transmission Date: 20091009
  Serious: Yes (Hospitalization)
  Sender: FDA-Public Use
  Company Number: AU-JNJFOC-20090501062

PATIENT
  Age: 61 Year
  Sex: Male
  Weight: 67 kg

DRUGS (7)
  1. REMICADE [Suspect]
     Route: 042
  2. REMICADE [Suspect]
     Route: 042
  3. REMICADE [Suspect]
     Route: 042
  4. REMICADE [Suspect]
     Route: 042
  5. REMICADE [Suspect]
     Indication: CROHN'S DISEASE
     Route: 042
  6. MESALAZINE [Concomitant]
  7. PERINDOPRIL ERBUMINE [Concomitant]

REACTIONS (6)
  - COUGH [None]
  - CROHN'S DISEASE [None]
  - DRUG INEFFECTIVE [None]
  - ECZEMA [None]
  - PRURITUS [None]
  - RASH [None]
